FAERS Safety Report 5964991-X (Version None)
Quarter: 2008Q4

REPORT INFORMATION
  Report Type: 
  Country: None (occurrence: None)
  Receive Date: 20081125
  Receipt Date: 20081008
  Transmission Date: 20090506
  Serious: No
  Sender: FDA-Public Use
  Company Number: US-AMGEN-KDL311415

PATIENT
  Sex: Female

DRUGS (14)
  1. ENBREL [Suspect]
     Indication: PSORIASIS
     Route: 058
     Dates: start: 20080613
  2. ASPIRIN [Concomitant]
  3. CLOBETASOL PROPIONATE [Concomitant]
  4. DOVONEX [Concomitant]
  5. HYDROCHLOROTHIAZIDE [Concomitant]
  6. NEURONTIN [Concomitant]
  7. NORVASC [Concomitant]
  8. PRILOSEC [Concomitant]
  9. ACTOS [Concomitant]
  10. LEVOTHYROXINE SODIUM [Concomitant]
  11. TRAMADOL HCL [Concomitant]
  12. GLYBURIDE [Concomitant]
  13. LISINOPRIL [Concomitant]
  14. ATENOLOL [Concomitant]

REACTIONS (2)
  - INCREASED APPETITE [None]
  - WEIGHT INCREASED [None]
